FAERS Safety Report 24223055 (Version 1)
Quarter: 2024Q3

REPORT INFORMATION
  Report Type: Spontaneous
  Country: US (occurrence: None)
  Receive Date: 20240814
  Receipt Date: 20240814
  Transmission Date: 20241017
  Serious: Yes (Other)
  Sender: Public
  Company Number: None

PATIENT
  Age: 72 Year
  Sex: Male
  Weight: 70 kg

DRUGS (1)
  1. N-ACETYLCARNOSINE [Suspect]
     Active Substance: N-ACETYLCARNOSINE
     Indication: Cataract
     Dosage: TWICE A DAY OPHTHALMIC?
     Route: 047

REACTIONS (2)
  - Corneal disorder [None]
  - Visual field defect [None]

NARRATIVE: CASE EVENT DATE: 20240805
